FAERS Safety Report 19007886 (Version 1)
Quarter: 2021Q1

REPORT INFORMATION
  Report Type: Spontaneous
  Country: BR (occurrence: BR)
  Receive Date: 20210315
  Receipt Date: 20210315
  Transmission Date: 20210420
  Serious: Yes (Other)
  Sender: FDA-Public Use
  Company Number: BR-ABBVIE-21K-020-3810733-00

PATIENT
  Sex: Male

DRUGS (1)
  1. HUMIRA [Suspect]
     Active Substance: ADALIMUMAB
     Indication: CROHN^S DISEASE
     Route: 058
     Dates: start: 201403, end: 202012

REACTIONS (6)
  - Tubulointerstitial nephritis [Unknown]
  - Renal failure [Unknown]
  - Blood creatine abnormal [Unknown]
  - Crohn^s disease [Unknown]
  - Blood creatinine increased [Unknown]
  - Nephropathy toxic [Unknown]

NARRATIVE: CASE EVENT DATE: 2020
